FAERS Safety Report 4887510-8 (Version None)
Quarter: 2006Q1

REPORT INFORMATION
  Report Type: 
  Country: None (occurrence: None)
  Receive Date: 20060123
  Receipt Date: 20060111
  Transmission Date: 20060701
  Serious: Yes (Other)
  Sender: FDA-Public Use
  Company Number: US-JNJFOC-20060102948

PATIENT
  Sex: Female
  Weight: 50.8 kg

DRUGS (4)
  1. DURAGESIC-100 [Suspect]
     Route: 062
     Dates: start: 20030401
  2. DIGOXIN [Concomitant]
     Indication: TACHYCARDIA
     Route: 048
     Dates: start: 20020101
  3. DILAUDID [Concomitant]
     Indication: PAIN
     Route: 048
     Dates: start: 20030401
  4. VERAPAMIL [Concomitant]
     Indication: TACHYCARDIA
     Route: 048
     Dates: start: 20000101

REACTIONS (3)
  - BREAST CANCER METASTATIC [None]
  - METASTASES TO LIVER [None]
  - OSTEOPOROSIS [None]
